FAERS Safety Report 8380276-9 (Version None)
Quarter: 2012Q2

REPORT INFORMATION
  Report Type: 
  Country: None (occurrence: None)
  Receive Date: 20120523
  Receipt Date: 20120510
  Transmission Date: 20120825
  Serious: Yes (Other)
  Sender: FDA-Public Use
  Company Number: GB-MYLANLABS-2012S1009764

PATIENT
  Age: 52 Year
  Sex: Male

DRUGS (1)
  1. METHOTREXATE [Suspect]
     Indication: BURKITT'S LYMPHOMA
     Route: 037

REACTIONS (1)
  - SUBDURAL HYGROMA [None]
